FAERS Safety Report 17113961 (Version 2)
Quarter: 2020Q3

REPORT INFORMATION
  Report Type: Other
  Country: US (occurrence: US)
  Receive Date: 20191205
  Receipt Date: 20200728
  Transmission Date: 20201102
  Serious: Yes (Other)
  Sender: FDA-Public Use
  Company Number: US-ROCHE-2485519

PATIENT
  Sex: Female

DRUGS (27)
  1. CELEXA [Concomitant]
     Active Substance: CITALOPRAM HYDROBROMIDE
     Route: 048
     Dates: start: 20150123, end: 20180824
  2. COLACE [Concomitant]
     Active Substance: DOCUSATE SODIUM
     Route: 048
     Dates: start: 20150123, end: 20180824
  3. METOPROLOL TARTRATE. [Concomitant]
     Active Substance: METOPROLOL TARTRATE
     Dosage: TAKE 1 TABLET TWICE DAILY
     Route: 048
     Dates: start: 20190116
  4. PREDNISONE. [Concomitant]
     Active Substance: PREDNISONE
     Dosage: TAKE 1 TAB AS NEEDED
     Route: 048
     Dates: start: 20130528, end: 20140518
  5. MIDODRINE HCL [Concomitant]
     Active Substance: MIDODRINE HYDROCHLORIDE
     Dosage: TAKE 1 TABLET 3 TIMES DAILY
     Route: 048
     Dates: start: 20190116
  6. METFORMIN HCL [Concomitant]
     Active Substance: METFORMIN HYDROCHLORIDE
  7. ESBRIET [Suspect]
     Active Substance: PIRFENIDONE
     Indication: ACUTE INTERSTITIAL PNEUMONITIS
     Dosage: TAKE 3 TABLET(S) BY MOUTH 3 TIMES A DAY
     Route: 048
  8. ESBRIET [Suspect]
     Active Substance: PIRFENIDONE
     Indication: IDIOPATHIC PULMONARY FIBROSIS
     Dosage: TAKE 2 TABLET 3 TIMES A DAY (DAY 8 TO 14)
     Route: 048
  9. ESBRIET [Suspect]
     Active Substance: PIRFENIDONE
     Dosage: TAKE 3 TABLET(S) BY MOUTH 3 TIMES A DAY (DAY 15 ON WARDS)
     Route: 048
  10. RANITIDINE HCL [Concomitant]
     Active Substance: RANITIDINE HYDROCHLORIDE
     Dosage: TAKE 1 TABLET DAILY AS DIRECTED
     Route: 048
     Dates: start: 20190116
  11. ISOSORBIDE MONONITRATE. [Concomitant]
     Active Substance: ISOSORBIDE MONONITRATE
  12. CYMBALTA [Concomitant]
     Active Substance: DULOXETINE HYDROCHLORIDE
     Dosage: TAKE 1 CAPSULE DAILY
     Route: 048
     Dates: start: 20130917
  13. KEFLEX [Concomitant]
     Active Substance: CEPHALEXIN
     Dosage: 1 CAPSULE PO
     Route: 048
     Dates: start: 20131122
  14. PLAVIX [Concomitant]
     Active Substance: CLOPIDOGREL BISULFATE
     Dosage: TAKE 1 TABLET DAILY
     Route: 048
     Dates: start: 20190116
  15. PREDNISONE. [Concomitant]
     Active Substance: PREDNISONE
     Route: 048
     Dates: start: 20150123, end: 20180824
  16. CEPHALEXIN. [Concomitant]
     Active Substance: CEPHALEXIN
     Route: 048
     Dates: start: 20140128, end: 20180824
  17. SIMVASTATIN. [Concomitant]
     Active Substance: SIMVASTATIN
     Route: 048
     Dates: start: 20150123, end: 20180824
  18. TRIMETHOPRIM. [Concomitant]
     Active Substance: TRIMETHOPRIM
     Dosage: 1 TABLET AT BEDTIME
     Route: 048
     Dates: start: 20160222, end: 20180824
  19. DOXYCYCLINE HYCLATE. [Concomitant]
     Active Substance: DOXYCYCLINE HYCLATE
     Dosage: 1 CAPSULE TWO TIMES DAILY
     Route: 048
     Dates: start: 20131004
  20. DOXYCYCLINE HYCLATE. [Concomitant]
     Active Substance: DOXYCYCLINE HYCLATE
     Dosage: 1 CAPSULE TWO TIMES DAILY
     Route: 048
     Dates: start: 20140317
  21. OXYBUTYNIN CHLORIDE. [Concomitant]
     Active Substance: OXYBUTYNIN CHLORIDE
     Route: 048
  22. PRAVASTINE [Concomitant]
     Active Substance: PRAVASTATIN SODIUM
     Dosage: TAKE 1 TABLET DAILY
     Route: 048
     Dates: start: 20190116
  23. TRADJENTA [Concomitant]
     Active Substance: LINAGLIPTIN
     Dosage: TAKE 1 TABLET DAILY
     Route: 048
     Dates: start: 20190116
  24. OMEPRAZOLE. [Concomitant]
     Active Substance: OMEPRAZOLE
     Dosage: TAKE 1 TAB TWICE DAILY
     Route: 048
     Dates: start: 20130523, end: 20131219
  25. OMEPRAZOLE. [Concomitant]
     Active Substance: OMEPRAZOLE
     Route: 048
     Dates: start: 20150123, end: 20180824
  26. ASPIRIN. [Concomitant]
     Active Substance: ASPIRIN
     Route: 048
     Dates: start: 20130405
  27. CLARITIN [Concomitant]
     Active Substance: LORATADINE
     Route: 048
     Dates: start: 20130405

REACTIONS (5)
  - Fall [Unknown]
  - Constipation [Unknown]
  - Spinal fracture [Unknown]
  - Back pain [Unknown]
  - Pelvic fracture [Unknown]
